FAERS Safety Report 21896748 (Version 1)
Quarter: 2023Q1

REPORT INFORMATION
  Report Type: Spontaneous
  Country: US (occurrence: US)
  Receive Date: 20230123
  Receipt Date: 20230123
  Transmission Date: 20230417
  Serious: No
  Sender: FDA-Public Use
  Company Number: US-GLAXOSMITHKLINE-USCH2023AMR003158

PATIENT

DRUGS (3)
  1. FLUTICASONE [Suspect]
     Active Substance: FLUTICASONE
     Indication: Eye swelling
     Dosage: UNK
  2. FLUTICASONE [Suspect]
     Active Substance: FLUTICASONE
     Indication: Eye pruritus
  3. FLUTICASONE [Suspect]
     Active Substance: FLUTICASONE
     Indication: Ocular hyperaemia

REACTIONS (2)
  - Drug effective for unapproved indication [Unknown]
  - Product use in unapproved indication [Unknown]
